FAERS Safety Report 7662024-0 (Version None)
Quarter: 2011Q3

REPORT INFORMATION
  Report Type: 
  Country: None (occurrence: None)
  Receive Date: 20110805
  Receipt Date: 20101209
  Transmission Date: 20111222
  Serious: No
  Sender: FDA-Public Use
  Company Number: US-ABBOTT-10P-163-0690375-00

PATIENT
  Sex: Male
  Weight: 83.99 kg

DRUGS (2)
  1. FISH OIL [Concomitant]
     Indication: PRODUCT USED FOR UNKNOWN INDICATION
  2. NIASPAN [Suspect]
     Indication: LOW DENSITY LIPOPROTEIN INCREASED
     Dosage: AT BEDTIME
     Dates: start: 20100701

REACTIONS (6)
  - RASH [None]
  - EYE PRURITUS [None]
  - FLUSHING [None]
  - URTICARIA [None]
  - PRURITUS [None]
  - OCULAR HYPERAEMIA [None]
